FAERS Safety Report 7862034-4 (Version None)
Quarter: 2011Q4

REPORT INFORMATION
  Report Type: 
  Country: None (occurrence: None)
  Receive Date: 20111027
  Receipt Date: 20101123
  Transmission Date: 20120403
  Serious: No
  Sender: FDA-Public Use
  Company Number: US-AMGEN-USASP2010006225

PATIENT
  Age: 45 Year
  Sex: Male

DRUGS (1)
  1. ENBREL [Suspect]
     Indication: RHEUMATOID ARTHRITIS
     Dates: start: 20050515, end: 20100101

REACTIONS (4)
  - RHEUMATOID ARTHRITIS [None]
  - IMPAIRED HEALING [None]
  - BRONCHITIS [None]
  - NASOPHARYNGITIS [None]
